FAERS Safety Report 17500295 (Version 1)
Quarter: 2020Q1

REPORT INFORMATION
  Report Type: Report from Study
  Country: US (occurrence: US)
  Receive Date: 20200305
  Receipt Date: 20200305
  Transmission Date: 20200409
  Serious: Yes (Other)
  Sender: FDA-Public Use
  Company Number: US-TEVA-2020-US-1194612

PATIENT
  Age: 72 Year
  Sex: Female

DRUGS (1)
  1. AUSTEDO [Suspect]
     Active Substance: DEUTETRABENAZINE
     Indication: TARDIVE DYSKINESIA
     Dosage: 12 MILLIGRAM DAILY; NEW TITRATING PATIENT
     Route: 048
     Dates: start: 20200217, end: 20200224

REACTIONS (9)
  - Fall [Unknown]
  - Dizziness [Unknown]
  - Abnormal dreams [Unknown]
  - Parkinson^s disease [Unknown]
  - Persecutory delusion [Unknown]
  - Depersonalisation/derealisation disorder [Unknown]
  - Dyskinesia [Unknown]
  - Hallucination, visual [Recovered/Resolved]
  - Walking aid user [Unknown]

NARRATIVE: CASE EVENT DATE: 202002
